FAERS Safety Report 9438053 (Version 1)
Quarter: 2013Q3

REPORT INFORMATION
  Report Type: Spontaneous
  Country: US (occurrence: US)
  Receive Date: 20130802
  Receipt Date: 20130802
  Transmission Date: 20140515
  Serious: Yes (Other)
  Sender: FDA-Public Use
  Company Number: US-BRISTOL-MYERS SQUIBB COMPANY-14246912

PATIENT
  Age: 67 Year
  Sex: Female
  Weight: 61.22 kg

DRUGS (3)
  1. COUMADIN TABS 4 MG [Suspect]
     Indication: THROMBOSIS
     Dosage: 1 DAY SHE TAKES 6MG IN A WEEK?CHANGED TO 4 MG ALL DAYS BUT ONE DAY 6MG IN 2 WEEKS ?CHANGED TO 8 MG
     Route: 048
     Dates: start: 2008
  2. WARFARIN SODIUM [Suspect]
  3. LIPITOR [Suspect]
     Dates: start: 201201, end: 201201

REACTIONS (4)
  - Rash [Unknown]
  - Abdominal discomfort [Unknown]
  - International normalised ratio fluctuation [Unknown]
  - Drug ineffective [Unknown]
